FAERS Safety Report 4511209-0 (Version None)
Quarter: 2004Q4

REPORT INFORMATION
  Report Type: 
  Country: None (occurrence: None)
  Receive Date: 20041122
  Receipt Date: 20041122
  Transmission Date: 20050328
  Serious: Yes (Hospitalization, Disabling)
  Sender: FDA-Public Use
  Company Number: None

PATIENT
  Age: 45 Year
  Sex: Female
  Weight: 54.4316 kg

DRUGS (4)
  1. DOXEPIN HCL [Suspect]
     Indication: MYOFASCIAL PAIN SYNDROME
     Dosage: 50 MG      ONE TIME     ORAL
     Route: 048
     Dates: start: 20040923, end: 20040923
  2. OXYCONTIN [Concomitant]
  3. SUPPLEMENTAL PAIN MEDS [Concomitant]
  4. SYNTHROID [Concomitant]

REACTIONS (10)
  - AMNESIA [None]
  - ASTHENIA [None]
  - COGNITIVE DISORDER [None]
  - CONVULSION [None]
  - COORDINATION ABNORMAL [None]
  - DIZZINESS [None]
  - DYSKINESIA [None]
  - INCOHERENT [None]
  - LOSS OF CONSCIOUSNESS [None]
  - NERVOUS SYSTEM DISORDER [None]
